FAERS Safety Report 21943441 (Version 2)
Quarter: 2023Q1

REPORT INFORMATION
  Report Type: Spontaneous
  Country: US (occurrence: US)
  Receive Date: 20230202
  Receipt Date: 20230206
  Transmission Date: 20230418
  Serious: No
  Sender: FDA-Public Use
  Company Number: US-002147023-NVSC2023US018583

PATIENT
  Sex: Female

DRUGS (1)
  1. COSENTYX [Suspect]
     Active Substance: SECUKINUMAB
     Indication: Product used for unknown indication
     Dosage: 150 MG (150 MG X 2)
     Route: 065
     Dates: start: 20230125

REACTIONS (3)
  - Accidental exposure to product [Unknown]
  - Device defective [Unknown]
  - Wrong technique in device usage process [Unknown]
